FAERS Safety Report 6457834-1 (Version None)
Quarter: 2009Q4

REPORT INFORMATION
  Report Type: 
  Country: None (occurrence: None)
  Receive Date: 20091125
  Receipt Date: 20091119
  Transmission Date: 20100525
  Serious: Yes (Hospitalization, Other)
  Sender: FDA-Public Use
  Company Number: US-AMGEN-QUU347721

PATIENT
  Sex: Male
  Weight: 110.3 kg

DRUGS (11)
  1. ENBREL [Suspect]
     Indication: RHEUMATOID ARTHRITIS
     Route: 058
     Dates: start: 20031104
  2. ENBREL [Suspect]
  3. COUMADIN [Suspect]
  4. METHOTREXATE [Concomitant]
     Route: 048
     Dates: start: 20021121
  5. METHOTREXATE [Concomitant]
     Dates: start: 20021121
  6. FOLIC ACID [Concomitant]
     Dates: start: 20021121
  7. ARTOTEC [Concomitant]
     Dates: start: 20021121
  8. TYLENOL (CAPLET) [Concomitant]
     Dates: start: 20021102
  9. MULTI-VITAMINS [Concomitant]
     Dates: start: 20021102
  10. TOPROL-XL [Concomitant]
     Dates: start: 20040204
  11. PROSCAR [Concomitant]
     Dates: start: 20050727

REACTIONS (7)
  - CONTUSION [None]
  - DEEP VEIN THROMBOSIS [None]
  - ECCHYMOSIS [None]
  - MITRAL VALVE REPLACEMENT [None]
  - MUSCLE SPASMS [None]
  - RHEUMATOID ARTHRITIS [None]
  - THERAPEUTIC RESPONSE DECREASED [None]
